FAERS Safety Report 4626173-3 (Version None)
Quarter: 2005Q1

REPORT INFORMATION
  Report Type: 
  Country: None (occurrence: None)
  Receive Date: 20050330
  Receipt Date: 20050203
  Transmission Date: 20050727
  Serious: Yes (Other)
  Sender: FDA-Public Use
  Company Number: EWC050142159

PATIENT
  Age: 68 Year
  Sex: Female
  Weight: 65 kg

DRUGS (4)
  1. PERGOLIDE MESYLATE [Suspect]
     Indication: PARKINSON'S DISEASE
     Dosage: 3 MG
     Dates: start: 20011211, end: 20040825
  2. SELEKTINE (PRAVASTATIN SODIUM) [Concomitant]
  3. TENORMIN (ATENOLOL EG) [Concomitant]
  4. RENITEC (ENALAPRIL) [Concomitant]

REACTIONS (1)
  - BREAST HYPERPLASIA [None]
